FAERS Safety Report 10257604 (Version 1)
Quarter: 2014Q2

REPORT INFORMATION
  Report Type: Spontaneous
  Country: GB (occurrence: None)
  Receive Date: 20140620
  Receipt Date: 20140620
  Transmission Date: 20141212
  Serious: Yes (Death)
  Sender: FDA-Public Use
  Company Number: AUR-APL-2014-06350

PATIENT
  Age: 49 Year
  Sex: Male
  Weight: 90 kg

DRUGS (3)
  1. RIBAVIRIN (RIBAVIRIN) [Suspect]
     Indication: HEPATITIS C
     Route: 048
     Dates: start: 20140303
  2. INCIVO (TELAPREVIR) [Suspect]
     Indication: PRODUCT USED FOR UNKNOWN INDICATION
     Dosage: 125MG, TWO TIMES A DAY, ORAL
     Route: 048
     Dates: start: 20140302
  3. VIRAFERONPEG [Suspect]
     Indication: HEPATITIS C
     Dosage: 150UG, EVERY WEEK, SUBCUTANEOUS
     Route: 058
     Dates: start: 20140302

REACTIONS (5)
  - Pneumonia [None]
  - Arrhythmia [None]
  - Myocardial fibrosis [None]
  - Sudden death [None]
  - Pneumonia [None]
